FAERS Safety Report 6666276-5 (Version None)
Quarter: 2010Q2

REPORT INFORMATION
  Report Type: 
  Country: None (occurrence: None)
  Receive Date: 20100402
  Receipt Date: 20100324
  Transmission Date: 20101027
  Serious: Yes (Hospitalization, Other)
  Sender: FDA-Public Use
  Company Number: US-WATSON-2010-04153

PATIENT
  Age: 70 Year
  Sex: Male

DRUGS (4)
  1. ISONIAZID [Suspect]
     Indication: PERITONEAL TUBERCULOSIS
     Dosage: 300 MG, DAILY
     Route: 048
  2. RIFAMPIN [Suspect]
     Indication: PERITONEAL TUBERCULOSIS
     Dosage: 600 MG, DAILY
     Route: 048
  3. ETHAMBUTOL HYDROCHLORIDE [Suspect]
     Indication: PERITONEAL TUBERCULOSIS
     Dosage: 1.2 G, DAILY
     Route: 048
  4. PYRAZINAMIDE [Suspect]
     Indication: PERITONEAL TUBERCULOSIS
     Dosage: 1.5 G, DAILY
     Route: 048

REACTIONS (2)
  - HEPATITIS [None]
  - IMMUNE RECONSTITUTION SYNDROME [None]
